FAERS Safety Report 4309242-7 (Version None)
Quarter: 2004Q1

REPORT INFORMATION
  Report Type: 
  Country: None (occurrence: None)
  Receive Date: 20040227
  Receipt Date: 20030304
  Transmission Date: 20041129
  Serious: No
  Sender: FDA-Public Use
  Company Number: 04P-167-0251081-00

PATIENT
  Age: 22 Year
  Sex: Female
  Weight: 128 kg

DRUGS (1)
  1. MERIDIA [Suspect]
     Dosage: 15 MG, 1 IN 1 D, PER ORAL
     Route: 048
     Dates: end: 20030128

REACTIONS (11)
  - ABDOMINAL PAIN UPPER [None]
  - ANXIETY [None]
  - DEPRESSION [None]
  - DIZZINESS [None]
  - DRUG INEFFECTIVE [None]
  - DYSGEUSIA [None]
  - FATIGUE [None]
  - HYPERHIDROSIS [None]
  - INSOMNIA [None]
  - PALPITATIONS [None]
  - VISION BLURRED [None]
